FAERS Safety Report 9961280 (Version 2)
Quarter: 2014Q1

REPORT INFORMATION
  Report Type: Spontaneous
  Country: US (occurrence: US)
  Receive Date: 20140305
  Receipt Date: 20140313
  Transmission Date: 20141002
  Serious: Yes (Other)
  Sender: FDA-Public Use
  Company Number: 2014SP000587

PATIENT
  Sex: Female

DRUGS (6)
  1. LATUDA [Suspect]
     Indication: BIPOLAR DISORDER
     Route: 048
     Dates: start: 201402, end: 20140227
  2. CYMBALTA [Concomitant]
     Indication: DEPRESSION
  3. LYRICA [Concomitant]
     Indication: DIABETIC NEUROPATHY
  4. BENZTROPINE [Concomitant]
     Indication: ADVERSE EVENT
  5. GLIMEPIRIDE [Concomitant]
     Indication: DIABETES MELLITUS
  6. HALDOL [Concomitant]

REACTIONS (9)
  - Pharyngeal oedema [Recovered/Resolved]
  - Throat tightness [Recovered/Resolved]
  - Choking [Recovered/Resolved]
  - Bronchitis [Recovered/Resolved]
  - Cough [Recovered/Resolved]
  - Laryngospasm [Recovered/Resolved]
  - Anger [Recovered/Resolved]
  - Depression [Recovered/Resolved]
  - Anxiety [Recovered/Resolved]
